FAERS Safety Report 8109457-6 (Version None)
Quarter: 2012Q1

REPORT INFORMATION
  Report Type: 
  Country: None (occurrence: None)
  Receive Date: 20120202
  Receipt Date: 20120110
  Transmission Date: 20120608
  Serious: Yes (Other)
  Sender: FDA-Public Use
  Company Number: US-AMGEN-USASP2011067661

PATIENT
  Age: 51 Year
  Sex: Male
  Weight: 83.9 kg

DRUGS (2)
  1. ENBREL [Suspect]
     Indication: RHEUMATOID ARTHRITIS
     Dosage: 50 MG, QWK
     Route: 058
     Dates: start: 20110927, end: 20110928
  2. METHOTREXATE [Concomitant]
     Dates: start: 20101001

REACTIONS (7)
  - CHRONIC LYMPHOCYTIC LEUKAEMIA [None]
  - WEIGHT DECREASED [None]
  - MALAISE [None]
  - CHILLS [None]
  - DIZZINESS [None]
  - HEADACHE [None]
  - PYREXIA [None]
